FAERS Safety Report 12811068 (Version 1)
Quarter: 2016Q4

REPORT INFORMATION
  Report Type: Spontaneous
  Country: US (occurrence: US)
  Receive Date: 20161005
  Receipt Date: 20161005
  Transmission Date: 20170207
  Serious: Yes (Disabling)
  Sender: FDA-Public Use
  Company Number: None

PATIENT
  Age: 81 Year
  Sex: Female
  Weight: 73.03 kg

DRUGS (1)
  1. DULOXETINE HCL [Suspect]
     Active Substance: DULOXETINE HYDROCHLORIDE
     Indication: NEUROPATHY PERIPHERAL
     Dosage: 1 PILL
     Route: 048
     Dates: start: 20160421, end: 20160725

REACTIONS (6)
  - Asthenia [None]
  - Urinary tract disorder [None]
  - Blood pressure fluctuation [None]
  - Listless [None]
  - Alopecia [None]
  - Urinary tract infection [None]

NARRATIVE: CASE EVENT DATE: 20160421
